FAERS Safety Report 17556655 (Version 2)
Quarter: 2020Q2

REPORT INFORMATION
  Report Type: Spontaneous
  Country: US (occurrence: US)
  Receive Date: 20200318
  Receipt Date: 20200416
  Transmission Date: 20200713
  Serious: Yes (Hospitalization, Other)
  Sender: FDA-Public Use
  Company Number: US-TASMAN PHARMA, INC.-2020TSM00108

PATIENT
  Age: 49 Year
  Sex: Male
  Weight: 73.92 kg

DRUGS (4)
  1. PROTONIX [Concomitant]
     Active Substance: PANTOPRAZOLE SODIUM
     Dosage: 40 MG, 2X/DAY
     Route: 048
  2. CARAFATE [Concomitant]
     Active Substance: SUCRALFATE
     Dosage: 1 G, 4X/DAY
     Route: 048
  3. CLOZAPINE. [Suspect]
     Active Substance: CLOZAPINE
     Dosage: 200 MG, 1X/DAY AT BEDTIME
     Route: 048
  4. CLOZAPINE. [Suspect]
     Active Substance: CLOZAPINE
     Indication: SCHIZOAFFECTIVE DISORDER BIPOLAR TYPE
     Dosage: 400 MG, 1X/DAY AT BEDTIME
     Route: 048

REACTIONS (14)
  - Oesophageal perforation [Recovering/Resolving]
  - Blood loss anaemia [Recovered/Resolved]
  - Empyema [Recovering/Resolving]
  - Pericardial effusion [Recovering/Resolving]
  - Iron deficiency anaemia [Recovering/Resolving]
  - Gastric ulcer haemorrhage [Recovered/Resolved]
  - Ileus [Recovering/Resolving]
  - Stomatococcal infection [Recovering/Resolving]
  - Atypical mycobacterial infection [Recovering/Resolving]
  - Vitamin D deficiency [Recovering/Resolving]
  - Oesophagopleural fistula [Recovering/Resolving]
  - Malnutrition [Recovering/Resolving]
  - Streptococcal infection [Recovering/Resolving]
  - Tobacco abuse [Not Recovered/Not Resolved]

NARRATIVE: CASE EVENT DATE: 2015
